FAERS Safety Report 8572131-6 (Version None)
Quarter: 2012Q3

REPORT INFORMATION
  Report Type: 
  Country: None (occurrence: None)
  Receive Date: 20120724
  Receipt Date: 20120715
  Transmission Date: 20120928
  Serious: Yes (Hospitalization)
  Sender: FDA-Public Use
  Company Number: DE-DEXPHARM-20120442

PATIENT
  Sex: Female

DRUGS (1)
  1. OMEPRAZOLE [Suspect]
     Indication: GASTRITIS
     Dosage: 20 MG MILLIGRAM(S) ORAL
     Route: 048
     Dates: start: 20120117, end: 20120124

REACTIONS (1)
  - RAYNAUD'S PHENOMENON [None]
